FAERS Safety Report 7731566-1 (Version None)
Quarter: 2011Q3

REPORT INFORMATION
  Report Type: 
  Country: None (occurrence: None)
  Receive Date: 20110906
  Receipt Date: 20110824
  Transmission Date: 20111222
  Serious: Yes (Hospitalization)
  Sender: FDA-Public Use
  Company Number: JP-BAYER-2011-078151

PATIENT
  Age: 70 Year
  Sex: Female
  Weight: 45 kg

DRUGS (8)
  1. HEPARIN [Suspect]
     Indication: PULMONARY EMBOLISM
     Dosage: DAILY DOSE 3000 U
     Route: 042
  2. ADRENALIN IN OIL INJ [Concomitant]
     Indication: PULMONARY EMBOLISM
     Dosage: DAILY DOSE 1 MG
     Route: 042
  3. CILNIDIPINE [Concomitant]
     Route: 048
  4. ASPIRIN [Suspect]
     Indication: LACUNAR INFARCTION
     Dosage: UNK
     Route: 048
  5. FUROSEMIDE [Concomitant]
     Route: 048
  6. DOPAMINE HCL [Concomitant]
     Indication: PULMONARY EMBOLISM
     Route: 042
  7. DIURETICS [Concomitant]
     Indication: HEPATIC FUNCTION ABNORMAL
     Route: 065
  8. DILTIAZEM HYDROCHLORIDE [Concomitant]
     Route: 048

REACTIONS (1)
  - SHOCK HAEMORRHAGIC [None]
